FAERS Safety Report 4580174-2 (Version None)
Quarter: 2005Q1

REPORT INFORMATION
  Report Type: 
  Country: None (occurrence: None)
  Receive Date: 20050214
  Receipt Date: 20050208
  Transmission Date: 20050727
  Serious: Yes (Life-Threatening, Hospitalization, Other)
  Sender: FDA-Public Use
  Company Number: US-BRISTOL-MYERS SQUIBB COMPANY-12854113

PATIENT
  Age: 70 Year
  Sex: Male
  Weight: 129 kg

DRUGS (7)
  1. ERBITUX [Suspect]
     Indication: COLON CANCER METASTATIC
     Route: 042
     Dates: start: 20050125
  2. BENADRYL [Concomitant]
     Indication: PREMEDICATION
     Route: 048
     Dates: start: 20050125
  3. TYLENOL [Concomitant]
     Indication: PREMEDICATION
     Route: 048
     Dates: start: 20050125
  4. CARDURA [Concomitant]
  5. COZAAR [Concomitant]
  6. LASIX [Concomitant]
  7. NORVASC [Concomitant]

REACTIONS (7)
  - CHILLS [None]
  - CYANOSIS [None]
  - PRURITUS [None]
  - PRURITUS GENERALISED [None]
  - RASH GENERALISED [None]
  - RASH PUSTULAR [None]
  - RESPIRATORY ARREST [None]
